FAERS Safety Report 8416072-3 (Version None)
Quarter: 2012Q2

REPORT INFORMATION
  Report Type: 
  Country: None (occurrence: None)
  Receive Date: 20120606
  Receipt Date: 20120530
  Transmission Date: 20120825
  Serious: Yes (Hospitalization)
  Sender: FDA-Public Use
  Company Number: NL-ROCHE-1073816

PATIENT
  Sex: Male
  Weight: 78 kg

DRUGS (11)
  1. ANTAGEL [Concomitant]
     Indication: GASTRIC DISORDER
     Route: 048
     Dates: start: 20120515
  2. TOLTERODINE TARTRATE [Concomitant]
     Indication: URINARY INCONTINENCE
     Route: 048
     Dates: start: 20110603
  3. AVASTIN [Suspect]
     Indication: BRAIN NEOPLASM MALIGNANT
     Dosage: DATE OF LAST DOSE PRIOR TO SAE: 04/MAY/2012
     Route: 042
     Dates: start: 20110311
  4. LOMUSTINE [Suspect]
     Indication: BRAIN NEOPLASM MALIGNANT
     Dosage: DATE OS LAST DOSE PRIOR TO SAE: 13/FEB/2011
     Route: 048
     Dates: start: 20110311
  5. PANTOPRAZOLE [Concomitant]
     Route: 048
     Dates: start: 20120126
  6. LEVETIRACETAM [Concomitant]
     Indication: EPILEPSY
     Route: 048
     Dates: start: 20110311
  7. DEXAMETHASONE [Concomitant]
     Route: 048
     Dates: start: 20110603
  8. VALPROINSAURE [Concomitant]
     Indication: EPILEPSY
     Dosage: 1000MG/1500 MG
     Route: 048
     Dates: start: 20110311
  9. ONDANSETRON [Concomitant]
     Indication: NAUSEA
     Route: 048
     Dates: start: 20111013
  10. MIDAZOLAM [Concomitant]
     Dosage: NASAL SPRAY
     Route: 050
     Dates: start: 20111230
  11. FENYTOIN [Concomitant]
     Indication: EPILEPSY
     Route: 048
     Dates: start: 20110311

REACTIONS (2)
  - HYPERBILIRUBINAEMIA [None]
  - JAUNDICE [None]
